FAERS Safety Report 21522143 (Version 6)
Quarter: 2023Q2

REPORT INFORMATION
  Report Type: Spontaneous
  Country: JP (occurrence: JP)
  Receive Date: 20221028
  Receipt Date: 20230502
  Transmission Date: 20230721
  Serious: Yes (Death, Other)
  Sender: FDA-Public Use
  Company Number: JP-NEUROCRINE BIOSCIENCES INC.-2022NBI07781

PATIENT

DRUGS (6)
  1. VALBENAZINE [Suspect]
     Active Substance: VALBENAZINE
     Indication: Tardive dyskinesia
     Dosage: 40 MILLIGRAM, QD
     Route: 048
     Dates: start: 20220629, end: 20220826
  2. BIPERIDEN [Concomitant]
     Active Substance: BIPERIDEN
     Indication: Parkinson^s disease
     Dosage: UNK
     Dates: start: 20210614, end: 20220826
  3. CLONAZEPAM [Concomitant]
     Active Substance: CLONAZEPAM
     Indication: Epilepsy
     Dosage: UNK
     Dates: start: 20210614, end: 20220826
  4. BROTIZOLAM [Concomitant]
     Active Substance: BROTIZOLAM
     Indication: Insomnia
     Dosage: UNK
     Dates: start: 20210614, end: 20220826
  5. SENNOSIDES A AND B [Concomitant]
     Active Substance: SENNOSIDES A AND B
     Indication: Constipation
     Dosage: UNK
     Dates: start: 20210614, end: 20220826
  6. RISPERIDONE [Concomitant]
     Active Substance: RISPERIDONE
     Indication: Schizophrenia
     Dosage: UNK
     Dates: start: 20210715, end: 20220826

REACTIONS (4)
  - Asphyxia [Fatal]
  - Dysphagia [Fatal]
  - Forearm fracture [Unknown]
  - Fall [Not Recovered/Not Resolved]

NARRATIVE: CASE EVENT DATE: 20220817
